FAERS Safety Report 10084803 (Version 3)
Quarter: 2014Q3

REPORT INFORMATION
  Report Type: Spontaneous
  Country: NO (occurrence: NO)
  Receive Date: 20140417
  Receipt Date: 20140807
  Transmission Date: 20150326
  Serious: Yes (Other)
  Sender: FDA-Public Use
  Company Number: CHPA2014NO005241

PATIENT
  Sex: Female

DRUGS (1)
  1. OTRIVIN [Suspect]
     Active Substance: XYLOMETAZOLINE
     Indication: NASAL CONGESTION
     Dosage: UP TO 7 DF, A DAY

REACTIONS (6)
  - Incorrect drug administration duration [Unknown]
  - Nasal congestion [Unknown]
  - Condition aggravated [Unknown]
  - Incorrect dose administered [Unknown]
  - Drug ineffective [Unknown]
  - Drug dependence [Unknown]
